FAERS Safety Report 16925905 (Version 1)
Quarter: 2019Q4

REPORT INFORMATION
  Report Type: Spontaneous
  Country: AE (occurrence: AE)
  Receive Date: 20191016
  Receipt Date: 20191016
  Transmission Date: 20200122
  Serious: Yes (Death)
  Sender: FDA-Public Use
  Company Number: AE-CHIESI USA, INC.-AE-2019CHI000379

PATIENT

DRUGS (1)
  1. CUROSURF [Suspect]
     Active Substance: PORACTANT ALFA
     Indication: PRODUCT USED FOR UNKNOWN INDICATION
     Dosage: 1.5 ML, UNK
     Route: 065

REACTIONS (1)
  - Cardiac disorder [Fatal]
